FAERS Safety Report 15408543 (Version 1)
Quarter: 2018Q3

REPORT INFORMATION
  Report Type: Report from Study
  Country: CN (occurrence: CN)
  Receive Date: 20180920
  Receipt Date: 20180920
  Transmission Date: 20181010
  Serious: Yes (Other)
  Sender: FDA-Public Use
  Company Number: CN-GILEAD-2018-0363545

PATIENT
  Age: 71 Year
  Sex: Female

DRUGS (1)
  1. ADEFOVIR DIPIVOXIL. [Suspect]
     Active Substance: ADEFOVIR DIPIVOXIL
     Indication: PRODUCT USED FOR UNKNOWN INDICATION
     Dosage: 10 MG, QD
     Route: 065

REACTIONS (8)
  - Renal tubular dysfunction [Recovering/Resolving]
  - Hypophosphataemia [Recovering/Resolving]
  - Bone pain [Recovering/Resolving]
  - Osteoporosis [Recovering/Resolving]
  - Fanconi syndrome [Recovering/Resolving]
  - Osteomalacia [Recovering/Resolving]
  - Bone metabolism disorder [Recovering/Resolving]
  - Multiple fractures [Recovering/Resolving]
